FAERS Safety Report 8849592 (Version 2)
Quarter: 2013Q4

REPORT INFORMATION
  Report Type: Spontaneous
  Country: IT (occurrence: IT)
  Receive Date: 20121019
  Receipt Date: 20131021
  Transmission Date: 20140711
  Serious: Yes (Hospitalization)
  Sender: FDA-Public Use
  Company Number: IT-JNJFOC-20121008454

PATIENT
  Age: 7 Year
  Sex: Male

DRUGS (1)
  1. IBUPROFEN [Suspect]
     Indication: PYREXIA
     Route: 048
     Dates: start: 20120925, end: 20120928

REACTIONS (2)
  - Gastric ulcer [Recovering/Resolving]
  - Gastritis erosive [Recovering/Resolving]
